FAERS Safety Report 14620949 (Version 2)
Quarter: 2018Q1

REPORT INFORMATION
  Report Type: Report from Study
  Country: KR (occurrence: KR)
  Receive Date: 20180309
  Receipt Date: 20180315
  Transmission Date: 20180509
  Serious: Yes (Death, Hospitalization, Other)
  Sender: FDA-Public Use
  Company Number: KR-BRISTOL-MYERS SQUIBB COMPANY-BMS-2018-017487

PATIENT
  Age: 81 Year
  Sex: Male
  Weight: 71 kg

DRUGS (3)
  1. TEGAFUR,GIMERACIL,OTERACIL POTASSIUM [Suspect]
     Active Substance: GIMERACIL\OTERACIL\TEGAFUR
     Indication: GASTRIC CANCER
     Dosage: 60 MG, BID
     Route: 048
     Dates: start: 20180214
  2. NIVOLUMAB [Suspect]
     Active Substance: NIVOLUMAB
     Indication: GASTRIC CANCER
     Dosage: 360 MG, UNK
     Route: 042
     Dates: start: 20180214
  3. OXALIPLATIN. [Suspect]
     Active Substance: OXALIPLATIN
     Indication: GASTRIC CANCER
     Dosage: 130 MG/M2, Q3WK
     Route: 041
     Dates: start: 20180214

REACTIONS (2)
  - Bacteraemia [Not Recovered/Not Resolved]
  - Hepatic failure [Fatal]

NARRATIVE: CASE EVENT DATE: 20180219
